FAERS Safety Report 6657373-9 (Version None)
Quarter: 2010Q1

REPORT INFORMATION
  Report Type: 
  Country: None (occurrence: None)
  Receive Date: 20100330
  Receipt Date: 20091218
  Transmission Date: 20100710
  Serious: Yes (Hospitalization, Other)
  Sender: FDA-Public Use
  Company Number: DE-JNJFOC-20090503188

PATIENT
  Age: 37 Year
  Sex: Male

DRUGS (19)
  1. TAVANIC [Suspect]
     Indication: URINARY TRACT INFECTION
     Route: 048
  2. IBUHEXAL 600 [Suspect]
     Indication: PAIN
     Route: 048
  3. LYRICA [Interacting]
     Indication: DRUG USE FOR UNKNOWN INDICATION
     Route: 065
  4. METOCLOPRAMIDE [Suspect]
     Indication: NAUSEA
     Route: 065
  5. ACIMETHIN [Concomitant]
     Route: 065
  6. ALENDRONIC ACID [Concomitant]
     Route: 048
  7. TRIMETHOPRIM [Concomitant]
     Route: 048
  8. CALCILAC KT [Concomitant]
     Route: 048
  9. CEFADROXIL [Concomitant]
     Route: 048
  10. CIALIS [Concomitant]
     Route: 048
  11. CLYSTER [Concomitant]
     Dosage: DOSE: 20*130 ML
     Route: 054
  12. NEW LECICARBON [Concomitant]
     Dosage: AS NEEDED SUPPOSITORIES
     Route: 054
  13. LIORESAL [Concomitant]
     Route: 048
  14. MICROKLIST [Concomitant]
     Route: 054
  15. MIRTAZAPINE [Concomitant]
     Route: 048
  16. MUCOANGIN [Concomitant]
     Route: 048
  17. NOVAMINSULFON-RATIOPHARM [Concomitant]
     Route: 048
  18. EYE DROPS, UNSPECIFIED [Concomitant]
     Route: 031
  19. LYRICA [Concomitant]
     Route: 048

REACTIONS (12)
  - ASTHENIA [None]
  - BRADYCARDIA [None]
  - CONSTIPATION [None]
  - DECREASED APPETITE [None]
  - DEHYDRATION [None]
  - DRUG INTERACTION [None]
  - DYSPNOEA [None]
  - GENERAL PHYSICAL HEALTH DETERIORATION [None]
  - MALAISE [None]
  - NAUSEA [None]
  - PANIC DISORDER [None]
  - THIRST DECREASED [None]
